FAERS Safety Report 19304363 (Version 2)
Quarter: 2024Q1

REPORT INFORMATION
  Report Type: Spontaneous
  Country: PL (occurrence: PL)
  Receive Date: 20210526
  Receipt Date: 20240331
  Transmission Date: 20240409
  Serious: Yes (Other)
  Sender: FDA-Public Use
  Company Number: PL-CELLTRION INC.-2020PL035080

PATIENT

DRUGS (1)
  1. INFLIXIMAB [Suspect]
     Active Substance: INFLIXIMAB
     Indication: Colitis ulcerative
     Dosage: UNK

REACTIONS (17)
  - Cell-mediated immune deficiency [Unknown]
  - Oesophagitis [Recovered/Resolved]
  - Oral herpes [Recovered/Resolved]
  - Pharyngitis [Unknown]
  - Herpes pharyngitis [Recovered/Resolved]
  - Herpes oesophagitis [Recovered/Resolved]
  - Herpes simplex [Recovering/Resolving]
  - Infection [Unknown]
  - Chest pain [Recovered/Resolved]
  - Aphonia [Recovered/Resolved]
  - Dysphonia [Recovered/Resolved]
  - Rash vesicular [Recovered/Resolved]
  - Influenza like illness [Recovered/Resolved]
  - Arthralgia [Recovered/Resolved]
  - Cough [Recovered/Resolved]
  - Herpes simplex reactivation [Recovered/Resolved]
  - Contraindication to medical treatment [Unknown]
